FAERS Safety Report 17635874 (Version 2)
Quarter: 2020Q2

REPORT INFORMATION
  Report Type: Other
  Country: DE (occurrence: DE)
  Receive Date: 20200407
  Receipt Date: 20200505
  Transmission Date: 20200713
  Serious: Yes (Hospitalization)
  Sender: FDA-Public Use
  Company Number: DE-CELLTRION INC.-2020DE021276

PATIENT

DRUGS (4)
  1. NITRENDIPIN [Concomitant]
     Active Substance: NITRENDIPINE
     Indication: CHRONIC KIDNEY DISEASE
     Dosage: 10 MG
     Route: 048
  2. CELLCEPT [Suspect]
     Active Substance: MYCOPHENOLATE MOFETIL\MYCOPHENOLATE MOFETIL HYDROCHLORIDE
     Indication: MICROSCOPIC POLYANGIITIS
     Dosage: 1750MG
     Route: 048
     Dates: start: 2016
  3. RITUXIMAB (UNKNOWN) [Suspect]
     Active Substance: RITUXIMAB
     Indication: MICROSCOPIC POLYANGIITIS
     Dosage: UNK
     Route: 058
     Dates: start: 20190702, end: 20190702
  4. LORZAAR [Concomitant]
     Active Substance: LOSARTAN
     Indication: CHRONIC KIDNEY DISEASE
     Dosage: 37.5MG
     Route: 048

REACTIONS (5)
  - General physical health deterioration [Unknown]
  - Product use issue [Unknown]
  - Myalgia [Unknown]
  - C-reactive protein increased [Unknown]
  - Infection [Unknown]

NARRATIVE: CASE EVENT DATE: 20190710
